FAERS Safety Report 5201118-6 (Version None)
Quarter: 2007Q1

REPORT INFORMATION
  Report Type: 
  Country: None (occurrence: None)
  Receive Date: 20070108
  Receipt Date: 20061227
  Transmission Date: 20070707
  Serious: Yes (Other)
  Sender: FDA-Public Use
  Company Number: JP-BRISTOL-MYERS SQUIBB COMPANY-13613161

PATIENT
  Age: 73 Year
  Sex: Female

DRUGS (5)
  1. ENDOXAN [Suspect]
     Indication: BREAST CANCER
     Route: 048
     Dates: start: 20061103, end: 20061116
  2. METHOTREXATE [Suspect]
     Indication: BREAST CANCER
     Route: 041
     Dates: start: 20061101, end: 20061108
  3. FLUOROURACIL [Suspect]
     Indication: BREAST CANCER
     Route: 041
     Dates: start: 20061101, end: 20061108
  4. MEYLON [Concomitant]
     Dates: start: 20061101, end: 20061108
  5. DIAMOX [Concomitant]
     Dates: start: 20061101, end: 20061108

REACTIONS (1)
  - INTERSTITIAL LUNG DISEASE [None]
